FAERS Safety Report 5143058-7 (Version None)
Quarter: 2006Q4

REPORT INFORMATION
  Report Type: 
  Country: None (occurrence: None)
  Receive Date: 20061103
  Receipt Date: 20061025
  Transmission Date: 20070319
  Serious: Yes (Hospitalization)
  Sender: FDA-Public Use
  Company Number: PHBS2006JP16798

PATIENT
  Age: 71 Year
  Sex: Female

DRUGS (1)
  1. ZADITEN [Suspect]
     Indication: URTICARIA
     Route: 048
     Dates: start: 20061017, end: 20061020

REACTIONS (3)
  - PLATELET COUNT DECREASED [None]
  - PURPURA [None]
  - THROMBOCYTOPENIA [None]
